FAERS Safety Report 17166518 (Version 1)
Quarter: 2019Q4

REPORT INFORMATION
  Report Type: Spontaneous
  Country: US (occurrence: US)
  Receive Date: 20191217
  Receipt Date: 20191217
  Transmission Date: 20200122
  Serious: Yes (Death)
  Sender: FDA-Public Use
  Company Number: US-FRESENIUS KABI-FK201914000

PATIENT
  Age: 54 Year
  Sex: Male

DRUGS (3)
  1. CYCLOPHOSPHAMIDE. [Suspect]
     Active Substance: CYCLOPHOSPHAMIDE
     Indication: CHRONIC MYELOID LEUKAEMIA
     Dosage: UNKNOWN
     Route: 065
     Dates: start: 201609
  2. CLOFARABINE (MANUFACTURER UNKNOWN) [Suspect]
     Active Substance: CLOFARABINE
     Indication: CHRONIC MYELOID LEUKAEMIA
     Dosage: UNKNOWN
     Route: 065
     Dates: start: 201609
  3. ETOPOSIDE (MANUFACTURER UNKNOWN) [Suspect]
     Active Substance: ETOPOSIDE
     Indication: CHRONIC MYELOID LEUKAEMIA
     Dosage: UNKNOWN
     Route: 065
     Dates: end: 201609

REACTIONS (3)
  - Aspergillus infection [Fatal]
  - Bacteraemia [Fatal]
  - Sepsis [Fatal]
